FAERS Safety Report 6151290-9 (Version None)
Quarter: 2009Q2

REPORT INFORMATION
  Report Type: 
  Country: None (occurrence: None)
  Receive Date: 20090410
  Receipt Date: 20090403
  Transmission Date: 20091009
  Serious: Yes (Other)
  Sender: FDA-Public Use
  Company Number: GB-ASTRAZENECA-2009GB00877

PATIENT

DRUGS (1)
  1. MERONEM [Suspect]
     Route: 042

REACTIONS (1)
  - INTRAVASCULAR HAEMOLYSIS [None]
